FAERS Safety Report 13177704 (Version 2)
Quarter: 2017Q1

REPORT INFORMATION
  Report Type: Report from Study
  Country: US (occurrence: US)
  Receive Date: 20170201
  Receipt Date: 20170207
  Transmission Date: 20170428
  Serious: Yes (Other)
  Sender: FDA-Public Use
  Company Number: US-AMGEN-USASL2017013651

PATIENT
  Age: 41 Year
  Sex: Female

DRUGS (1)
  1. ENBREL [Suspect]
     Active Substance: ETANERCEPT
     Indication: RHEUMATOID ARTHRITIS
     Dosage: 50 MG, QWK
     Route: 065
     Dates: end: 20170118

REACTIONS (7)
  - Injection site induration [Unknown]
  - Injection site erythema [Unknown]
  - Bronchitis [Not Recovered/Not Resolved]
  - Sinusitis [Not Recovered/Not Resolved]
  - Injection site infection [Unknown]
  - Hypersensitivity [Unknown]
  - Pertussis [Not Recovered/Not Resolved]

NARRATIVE: CASE EVENT DATE: 201701
